FAERS Safety Report 17681988 (Version 1)
Quarter: 2020Q2

REPORT INFORMATION
  Report Type: Spontaneous
  Country: US (occurrence: US)
  Receive Date: 20200418
  Receipt Date: 20200418
  Transmission Date: 20200714
  Serious: No
  Sender: FDA-Public Use
  Company Number: US-DRREDDYS-USA/USA/20/0122024

PATIENT
  Age: 49 Year
  Sex: Female
  Weight: 52.64 kg

DRUGS (1)
  1. ZOLEDRONIC ACID INJECTION, 5 MG (BASE)/100 ML [Suspect]
     Active Substance: ZOLEDRONIC ACID
     Indication: OSTEOPOROSIS
     Dosage: DOSE 5 MG (BASE)/100 ML (0.05 MG (BASE)/ML)
     Route: 042
     Dates: start: 20200309, end: 20200309

REACTIONS (1)
  - Palpable purpura [Not Recovered/Not Resolved]

NARRATIVE: CASE EVENT DATE: 20200317
